FAERS Safety Report 7767172-2 (Version None)
Quarter: 2011Q3

REPORT INFORMATION
  Report Type: 
  Country: None (occurrence: None)
  Receive Date: 20110922
  Receipt Date: 20110203
  Transmission Date: 20111222
  Serious: No
  Sender: FDA-Public Use
  Company Number: US-ASTRAZENECA-2011SE06038

PATIENT
  Age: 97 Year
  Sex: Female
  Weight: 45.4 kg

DRUGS (3)
  1. SEROQUEL [Suspect]
     Indication: HALLUCINATION
     Route: 048
  2. SEROQUEL [Suspect]
     Dosage: 75 MGS DAILY IF NEEDED
     Route: 048
  3. SEROQUEL [Suspect]
     Route: 048
     Dates: start: 20110201

REACTIONS (7)
  - SOMNOLENCE [None]
  - HALLUCINATION [None]
  - RESTLESSNESS [None]
  - CHOLELITHIASIS [None]
  - AGITATION [None]
  - FALL [None]
  - DRUG INEFFECTIVE [None]
